FAERS Safety Report 10526394 (Version 2)
Quarter: 2015Q2

REPORT INFORMATION
  Report Type: Spontaneous
  Country: US (occurrence: US)
  Receive Date: 20141020
  Receipt Date: 20150602
  Transmission Date: 20150821
  Serious: No
  Sender: FDA-Public Use
  Company Number: US-TEVA-514036USA

PATIENT
  Age: 17 Year
  Sex: Male

DRUGS (1)
  1. CLARAVIS [Suspect]
     Active Substance: ISOTRETINOIN

REACTIONS (7)
  - Adverse event [Unknown]
  - Depression [Unknown]
  - Mood altered [Unknown]
  - Anxiety [Unknown]
  - Low density lipoprotein increased [Unknown]
  - Blood bilirubin increased [Unknown]
  - High density lipoprotein decreased [Unknown]
